FAERS Safety Report 8344681-9 (Version None)
Quarter: 2012Q2

REPORT INFORMATION
  Report Type: 
  Country: None (occurrence: None)
  Receive Date: 20120402
  Receipt Date: 20120105
  Transmission Date: 20120825
  Serious: Yes (Other)
  Sender: FDA-Public Use
  Company Number: 2012-000034

PATIENT
  Age: 58 Year
  Sex: Female

DRUGS (12)
  1. IRON [Concomitant]
  2. VITAMINS NOS [Concomitant]
  3. CALCIUM CARBONATE [Concomitant]
  4. VESICARE [Concomitant]
  5. ESTRACE [Suspect]
     Indication: VULVOVAGINAL DRYNESS
     Dosage: 0.01% USED DAILY THEN 3 TIMES WEEKLY, VAGINAL; 0.01% UNKNOWN, VAGINAL
     Route: 067
     Dates: start: 20120105
  6. ESTRACE [Suspect]
     Indication: UTERINE PROLAPSE
     Dosage: 0.01% USED DAILY THEN 3 TIMES WEEKLY, VAGINAL; 0.01% UNKNOWN, VAGINAL
     Route: 067
     Dates: start: 20120105
  7. ESTRACE [Suspect]
     Indication: CYSTOCELE
     Dosage: 0.01% USED DAILY THEN 3 TIMES WEEKLY, VAGINAL; 0.01% UNKNOWN, VAGINAL
     Route: 067
     Dates: start: 20120105
  8. ESTRACE [Suspect]
     Indication: VULVOVAGINAL DRYNESS
     Dosage: 0.01% USED DAILY THEN 3 TIMES WEEKLY, VAGINAL; 0.01% UNKNOWN, VAGINAL
     Route: 067
     Dates: start: 20100901, end: 20110101
  9. ESTRACE [Suspect]
     Indication: UTERINE PROLAPSE
     Dosage: 0.01% USED DAILY THEN 3 TIMES WEEKLY, VAGINAL; 0.01% UNKNOWN, VAGINAL
     Route: 067
     Dates: start: 20100901, end: 20110101
  10. ESTRACE [Suspect]
     Indication: CYSTOCELE
     Dosage: 0.01% USED DAILY THEN 3 TIMES WEEKLY, VAGINAL; 0.01% UNKNOWN, VAGINAL
     Route: 067
     Dates: start: 20100901, end: 20110101
  11. SYNTHROID [Concomitant]
  12. LAMICTAL [Concomitant]

REACTIONS (1)
  - BREAST CANCER STAGE I [None]
